FAERS Safety Report 5529159-X (Version None)
Quarter: 2007Q4

REPORT INFORMATION
  Report Type: 
  Country: None (occurrence: None)
  Receive Date: 20071129
  Receipt Date: 20070326
  Transmission Date: 20080405
  Serious: Yes (Disabling, Other)
  Sender: FDA-Public Use
  Company Number: A0642444A

PATIENT
  Age: 22 Year
  Sex: Female
  Weight: 57.3 kg

DRUGS (3)
  1. WELLBUTRIN SR [Suspect]
     Indication: DEPRESSION
     Dosage: 100MG PER DAY
     Route: 048
     Dates: start: 20070101, end: 20070101
  2. ORAL CONTRACEPTIVES [Concomitant]
  3. SYNTHROID [Concomitant]

REACTIONS (1)
  - RASH PRURITIC [None]
